FAERS Safety Report 24574883 (Version 1)
Quarter: 2024Q4

REPORT INFORMATION
  Report Type: Spontaneous
  Country: FR (occurrence: FR)
  Receive Date: 20241104
  Receipt Date: 20241104
  Transmission Date: 20250114
  Serious: Yes (Other)
  Sender: CELLTRION
  Company Number: None

PATIENT

DRUGS (2)
  1. RITUXIMAB [Suspect]
     Active Substance: RITUXIMAB
     Indication: Muscular weakness
     Dosage: 1 DF EVERY 6 MONTHS
     Route: 042
     Dates: start: 202305, end: 202311
  2. COLPRONE [Suspect]
     Active Substance: MEDROGESTONE
     Indication: Menopause
     Dosage: UNK
     Route: 048
     Dates: start: 20231107, end: 20240408

REACTIONS (2)
  - Pulmonary embolism [Recovering/Resolving]
  - Intentional product use issue [Unknown]

NARRATIVE: CASE EVENT DATE: 20240408
